FAERS Safety Report 25470219 (Version 2)
Quarter: 2025Q3

REPORT INFORMATION
  Report Type: Spontaneous
  Country: CN (occurrence: CN)
  Receive Date: 20250623
  Receipt Date: 20250803
  Transmission Date: 20251021
  Serious: Yes (Hospitalization)
  Sender: ALEXION PHARMACEUTICALS
  Company Number: CN-ASTRAZENECA-202506CHN017805CN

PATIENT
  Age: 75 Year
  Sex: Female
  Weight: 50 kg

DRUGS (2)
  1. DAPAGLIFLOZIN [Suspect]
     Active Substance: DAPAGLIFLOZIN
     Dosage: 10 MILLIGRAM, QD
     Dates: start: 20250523, end: 20250531
  2. REPAGLINIDE [Concomitant]
     Active Substance: REPAGLINIDE
     Indication: Type 2 diabetes mellitus
     Dosage: 1 MILLIGRAM, TID
     Dates: start: 20250523, end: 20250530

REACTIONS (6)
  - Urinary tract infection [Recovering/Resolving]
  - Fall [Unknown]
  - Fracture [Unknown]
  - Pain [Unknown]
  - Dysuria [Unknown]
  - Pyrexia [Unknown]

NARRATIVE: CASE EVENT DATE: 20250531
